FAERS Safety Report 12145277 (Version 1)
Quarter: 2016Q1

REPORT INFORMATION
  Report Type: Report from Study
  Country: US (occurrence: US)
  Receive Date: 20160304
  Receipt Date: 20160304
  Transmission Date: 20160526
  Serious: Yes (Other)
  Sender: FDA-Public Use
  Company Number: PHEH2016US005131

PATIENT
  Sex: Male

DRUGS (1)
  1. TRILEPTAL [Suspect]
     Active Substance: OXCARBAZEPINE
     Indication: AFFECTIVE DISORDER
     Dosage: UNK
     Route: 065

REACTIONS (6)
  - Cyst [Unknown]
  - Disturbance in attention [Unknown]
  - Pain [Unknown]
  - Product use issue [Unknown]
  - Feeling abnormal [Unknown]
  - Nervousness [Unknown]
